FAERS Safety Report 24584221 (Version 1)
Quarter: 2024Q4

REPORT INFORMATION
  Report Type: Spontaneous
  Country: US (occurrence: US)
  Receive Date: 20241106
  Receipt Date: 20241106
  Transmission Date: 20250115
  Serious: No
  Sender: COVIS PHARMA GMBH
  Company Number: US-Covis Pharma GmbH-2024COV01270

PATIENT
  Sex: Female

DRUGS (1)
  1. ZETONNA [Suspect]
     Active Substance: CICLESONIDE
     Route: 045

REACTIONS (1)
  - Sinusitis [Recovered/Resolved]
